FAERS Safety Report 8421624 (Version 2)
Quarter: 2013Q1

REPORT INFORMATION
  Report Type: Spontaneous
  Country: BR (occurrence: BR)
  Receive Date: 20120223
  Receipt Date: 20130321
  Transmission Date: 20140127
  Serious: Yes (Other)
  Sender: FDA-Public Use
  Company Number: BR-AMGEN-BRASP2012010303

PATIENT
  Age: 41 Year
  Sex: Female
  Weight: 92 kg

DRUGS (5)
  1. ENBREL [Suspect]
     Indication: PSORIASIS
     Dosage: 25 MG, 2X/WEEK
     Route: 058
     Dates: start: 200810, end: 2012
  2. ENBREL [Suspect]
     Dosage: 50 MG, QWK
     Route: 058
     Dates: start: 2012
  3. PURAN T4 [Concomitant]
     Indication: PRODUCT USED FOR UNKNOWN INDICATION
     Dosage: UNK
  4. METHOTREXATE [Concomitant]
     Indication: PRODUCT USED FOR UNKNOWN INDICATION
     Dosage: ONE AMPOULE OF 25MG WEEKLY
  5. FLUOXETINE [Concomitant]
     Indication: PRODUCT USED FOR UNKNOWN INDICATION
     Dosage: UNK

REACTIONS (14)
  - Haemorrhage [Unknown]
  - Wound [Unknown]
  - Arthralgia [Unknown]
  - Pain in extremity [Unknown]
  - Bone pain [Unknown]
  - Skin warm [Unknown]
  - Pruritus [Unknown]
  - Autoimmune thyroiditis [Unknown]
  - Blood pressure increased [Unknown]
  - Vitamin B12 deficiency [Unknown]
  - Depression [Unknown]
  - Drug ineffective [Unknown]
  - Injection site induration [Unknown]
  - Injection site pain [Unknown]
